FAERS Safety Report 6785790-5 (Version None)
Quarter: 2010Q2

REPORT INFORMATION
  Report Type: 
  Country: None (occurrence: None)
  Receive Date: 20100622
  Receipt Date: 20100622
  Transmission Date: 20101027
  Serious: Yes (Hospitalization)
  Sender: FDA-Public Use
  Company Number: None

PATIENT
  Age: 77 Year
  Sex: Male
  Weight: 79.5 kg

DRUGS (7)
  1. ASPIRIN [Suspect]
     Indication: CORONARY ARTERY DISEASE
     Dosage: 325MG DAILY PO CHRONIC
     Route: 048
  2. DIOVAN [Concomitant]
  3. METOPROLOL [Concomitant]
  4. FISH OIL [Concomitant]
  5. SYNTHROID [Concomitant]
  6. M.V.I. [Concomitant]
  7. PRILOSEC [Concomitant]

REACTIONS (2)
  - CEREBRAL HAEMORRHAGE [None]
  - CEREBRAL INFARCTION [None]
